FAERS Safety Report 9919616 (Version 2)
Quarter: 2014Q1

REPORT INFORMATION
  Report Type: Spontaneous
  Country: IT (occurrence: IT)
  Receive Date: 20140224
  Receipt Date: 20140224
  Transmission Date: 20141002
  Serious: Yes (Death, Other)
  Sender: FDA-Public Use
  Company Number: IT-B.I. PHARMACEUTICALS,INC./RIDGEFIELD-2013-BI-43082IT

PATIENT
  Age: 66 Year
  Sex: Male
  Weight: 75 kg

DRUGS (9)
  1. PRADAXA [Suspect]
     Indication: ATRIAL FIBRILLATION
     Route: 048
     Dates: start: 20130909, end: 20131118
  2. LANSOPRAZOLE [Concomitant]
     Route: 048
  3. BISOPROLOL HEMIFUMARATE [Concomitant]
     Route: 048
  4. TORVAST [Concomitant]
     Route: 048
  5. EPINITRIL [Concomitant]
     Route: 062
  6. CARDIOASPIRIN [Concomitant]
     Route: 048
  7. LACIREX [Concomitant]
     Route: 048
  8. FOLIDEX [Concomitant]
     Route: 048
  9. TRIATEC [Concomitant]
     Route: 048

REACTIONS (2)
  - Lung neoplasm malignant [Fatal]
  - Dyspepsia [Recovered/Resolved]
